FAERS Safety Report 14560891 (Version 1)
Quarter: 2018Q1

REPORT INFORMATION
  Report Type: Spontaneous
  Country: AR (occurrence: AR)
  Receive Date: 20180222
  Receipt Date: 20180222
  Transmission Date: 20180509
  Serious: Yes (Other)
  Sender: FDA-Public Use
  Company Number: AR-ROCHE-2072557

PATIENT
  Sex: Female

DRUGS (1)
  1. HERCEPTIN [Suspect]
     Active Substance: TRASTUZUMAB
     Indication: PRODUCT USED FOR UNKNOWN INDICATION
     Route: 042

REACTIONS (6)
  - Heart rate [Recovering/Resolving]
  - Spinal pain [Unknown]
  - Hypertension [Recovering/Resolving]
  - Facial pain [Unknown]
  - Tremor [Unknown]
  - Pain in extremity [Unknown]
